FAERS Safety Report 11485923 (Version 2)
Quarter: 2015Q4

REPORT INFORMATION
  Report Type: Report from Study
  Country: US (occurrence: US)
  Receive Date: 20150910
  Receipt Date: 20151123
  Transmission Date: 20160304
  Serious: Yes (Other)
  Sender: FDA-Public Use
  Company Number: US-AMGEN-USASL2015091193

PATIENT
  Age: 54 Year
  Sex: Female

DRUGS (2)
  1. ENBREL [Suspect]
     Active Substance: ETANERCEPT
     Indication: PSORIASIS
     Dosage: 50 UNK, QWK
     Route: 058
     Dates: start: 20151113
  2. ENBREL [Suspect]
     Active Substance: ETANERCEPT
     Indication: PSORIATIC ARTHROPATHY
     Dosage: 50 MG, QWK
     Route: 058
     Dates: start: 201309, end: 201412

REACTIONS (15)
  - Injection site reaction [Unknown]
  - Wound haemorrhage [Not Recovered/Not Resolved]
  - Skin abrasion [Not Recovered/Not Resolved]
  - Wound infection bacterial [Unknown]
  - Injection site swelling [Unknown]
  - Fall [Not Recovered/Not Resolved]
  - Psoriasis [Unknown]
  - Injection site erythema [Unknown]
  - Skin induration [Not Recovered/Not Resolved]
  - Injection site pruritus [Unknown]
  - Wound secretion [Not Recovered/Not Resolved]
  - Scab [Not Recovered/Not Resolved]
  - Wound complication [Not Recovered/Not Resolved]
  - Hypoaesthesia [Not Recovered/Not Resolved]
  - Peripheral swelling [Unknown]

NARRATIVE: CASE EVENT DATE: 201309
